FAERS Safety Report 7538304-6 (Version None)
Quarter: 2011Q2

REPORT INFORMATION
  Report Type: 
  Country: None (occurrence: None)
  Receive Date: 20110609
  Receipt Date: 20070326
  Transmission Date: 20111010
  Serious: Yes (Life-Threatening, Hospitalization)
  Sender: FDA-Public Use
  Company Number: PHEH2006US15002

PATIENT
  Sex: Male
  Weight: 81.632 kg

DRUGS (5)
  1. DIOVAN HCT [Suspect]
     Indication: HYPERTENSION
     Dosage: 160MG VAL/12.5MG HCT, QD
     Route: 048
  2. CAMPRAL [Concomitant]
     Indication: ALCOHOL ABUSE
     Dosage: 666 MG, TID
     Route: 048
  3. GUAIFENESIN [Concomitant]
     Dosage: 600 MG, BID
     Route: 048
  4. PHENERGAN HCL [Concomitant]
     Dosage: UNK, UNK
  5. NEXIUM [Concomitant]
     Indication: GASTROOESOPHAGEAL REFLUX DISEASE
     Dosage: 40 MG, QD
     Route: 048

REACTIONS (33)
  - VOMITING [None]
  - TREMOR [None]
  - HYPERGLYCAEMIA [None]
  - LABORATORY TEST ABNORMAL [None]
  - HAEMOGLOBIN DECREASED [None]
  - NAUSEA [None]
  - ATAXIA [None]
  - MALNUTRITION [None]
  - ALCOHOL WITHDRAWAL SYNDROME [None]
  - ASPARTATE AMINOTRANSFERASE INCREASED [None]
  - PYREXIA [None]
  - ABDOMINAL PAIN [None]
  - CONVULSION [None]
  - ELECTROLYTE IMBALANCE [None]
  - HYPOMAGNESAEMIA [None]
  - BLOOD CREATININE INCREASED [None]
  - ANION GAP INCREASED [None]
  - ANXIETY [None]
  - GASTROENTERITIS [None]
  - DEHYDRATION [None]
  - DIARRHOEA [None]
  - HAEMATOCRIT DECREASED [None]
  - ALANINE AMINOTRANSFERASE INCREASED [None]
  - MAJOR DEPRESSION [None]
  - HYPOKALAEMIA [None]
  - METABOLIC ACIDOSIS [None]
  - BLOOD UREA DECREASED [None]
  - BLOOD CALCIUM DECREASED [None]
  - RED BLOOD CELL COUNT DECREASED [None]
  - PLATELET COUNT DECREASED [None]
  - JAUNDICE [None]
  - HYPERTENSION [None]
  - TACHYCARDIA [None]
